FAERS Safety Report 5679128-4 (Version None)
Quarter: 2008Q1

REPORT INFORMATION
  Report Type: 
  Country: None (occurrence: None)
  Receive Date: 20080325
  Receipt Date: 20080314
  Transmission Date: 20080703
  Serious: Yes (Death)
  Sender: FDA-Public Use
  Company Number: JP-MERCK-0803USA03367

PATIENT
  Age: 84 Year
  Sex: Male

DRUGS (2)
  1. ZETIA [Suspect]
     Route: 048
     Dates: start: 20070731, end: 20080222
  2. CRESTOR [Concomitant]
     Route: 065
     Dates: end: 20080222

REACTIONS (3)
  - CHOLANGITIS [None]
  - PANCREATITIS ACUTE [None]
  - SEPSIS [None]
